FAERS Safety Report 20982849 (Version 1)
Quarter: 2022Q2

REPORT INFORMATION
  Report Type: Spontaneous
  Country: US (occurrence: US)
  Receive Date: 20220620
  Receipt Date: 20220620
  Transmission Date: 20220720
  Serious: No
  Sender: FDA-Public Use
  Company Number: US-NOVARTISTESTPH-NVSC2022US140291

PATIENT
  Sex: Male
  Weight: 159 kg

DRUGS (4)
  1. NAPROXEN [Suspect]
     Active Substance: NAPROXEN
     Indication: Product used for unknown indication
     Dosage: UNK
     Route: 065
  2. HYDROXYCHLOROQUINE [Suspect]
     Active Substance: HYDROXYCHLOROQUINE
     Indication: Juvenile idiopathic arthritis
     Dosage: UNK
     Route: 065
  3. CLONIDINE [Suspect]
     Active Substance: CLONIDINE
     Indication: Bone tuberculosis
     Dosage: UNK
     Route: 065
  4. CYPROHEPTADINE HYDROCHLORIDE [Suspect]
     Active Substance: CYPROHEPTADINE HYDROCHLORIDE
     Indication: Product used for unknown indication
     Dosage: UNK
     Route: 065

REACTIONS (17)
  - Aphthous ulcer [Unknown]
  - Decreased appetite [Unknown]
  - Dry eye [Unknown]
  - Pain [Unknown]
  - Hypoaesthesia [Unknown]
  - Musculoskeletal stiffness [Unknown]
  - Fatigue [Unknown]
  - Depression [Unknown]
  - Weight decreased [Unknown]
  - Photosensitivity reaction [Unknown]
  - Eating disorder [Unknown]
  - Arthralgia [Unknown]
  - Pain in extremity [Unknown]
  - Memory impairment [Unknown]
  - Insomnia [Unknown]
  - Malaise [Unknown]
  - Sleep talking [Unknown]
